FAERS Safety Report 7560597-X (Version None)
Quarter: 2011Q2

REPORT INFORMATION
  Report Type: 
  Country: None (occurrence: None)
  Receive Date: 20110621
  Receipt Date: 20100601
  Transmission Date: 20111010
  Serious: No
  Sender: FDA-Public Use
  Company Number: US-ASTRAZENECA-2010SE25267

PATIENT
  Age: 51 Year
  Sex: Female
  Weight: 90.7 kg

DRUGS (20)
  1. REGLAN [Concomitant]
  2. METFORMIN HCL [Concomitant]
  3. ENTOCORT EC [Suspect]
     Route: 048
  4. FISH OIL [Concomitant]
  5. BENZONATE [Concomitant]
  6. ZEGRID [Concomitant]
  7. HYDROCODONE [Concomitant]
  8. COMPAZINE [Concomitant]
  9. ZOFRAN [Concomitant]
  10. TRAZEDONE [Concomitant]
  11. LEXAPRO [Concomitant]
  12. RANITIDINE [Concomitant]
  13. PANCRELIPASE [Concomitant]
  14. VERPAMIL HCL [Concomitant]
  15. ZITHROMAX [Concomitant]
  16. ENTOCORT EC [Suspect]
     Indication: COLITIS
     Route: 048
     Dates: start: 20091201, end: 20100101
  17. VITAMIN TAB [Concomitant]
  18. PREMARIN [Concomitant]
  19. ALLEGRA D 24 HOUR [Concomitant]
  20. SYNTHROID [Concomitant]
     Indication: SINUSITIS

REACTIONS (6)
  - INFLUENZA LIKE ILLNESS [None]
  - EAR INFECTION [None]
  - RHINITIS [None]
  - DYSPNOEA [None]
  - DYSPHONIA [None]
  - PAIN [None]
